FAERS Safety Report 20035851 (Version 3)
Quarter: 2021Q4

REPORT INFORMATION
  Report Type: Spontaneous
  Country: GB (occurrence: GB)
  Receive Date: 20211105
  Receipt Date: 20211213
  Transmission Date: 20220303
  Serious: Yes (Other)
  Sender: FDA-Public Use
  Company Number: GB-ROCHE-2861190

PATIENT
  Age: 65 Year
  Sex: Male
  Weight: 83.95 kg

DRUGS (25)
  1. BEVACIZUMAB [Suspect]
     Active Substance: BEVACIZUMAB
     Indication: Non-small cell lung cancer
     Dosage: UNK
     Route: 042
  2. ATEZOLIZUMAB [Suspect]
     Active Substance: ATEZOLIZUMAB
     Indication: Non-small cell lung cancer
     Dosage: 1200 MILLIGRAM
     Route: 041
  3. ATEZOLIZUMAB [Suspect]
     Active Substance: ATEZOLIZUMAB
     Dosage: 1200 MILLIGRAM
     Route: 041
  4. CARBOPLATIN [Suspect]
     Active Substance: CARBOPLATIN
     Indication: Non-small cell lung cancer
     Dosage: 400 MILLIGRAM
     Route: 065
  5. CARBOPLATIN [Suspect]
     Active Substance: CARBOPLATIN
     Dosage: 400 MILLIGRAM
     Route: 065
  6. PACLITAXEL [Suspect]
     Active Substance: PACLITAXEL
     Indication: Non-small cell lung cancer
     Dosage: 270 MILLIGRAM
     Route: 065
  7. AFATINIB [Concomitant]
     Active Substance: AFATINIB
     Indication: Neoplasm malignant
     Dosage: UNK
  8. DEXAMETHASONE [Concomitant]
     Active Substance: DEXAMETHASONE
     Dosage: 16.5 MILLIGRAM
     Route: 065
     Dates: start: 20210416, end: 20210416
  9. DEXAMETHASONE [Concomitant]
     Active Substance: DEXAMETHASONE
     Dosage: 13.2 MILLIGRAM
     Route: 065
     Dates: start: 20210531, end: 20210531
  10. DEXAMETHASONE [Concomitant]
     Active Substance: DEXAMETHASONE
     Dosage: 16.5 MILLIGRAM
     Route: 065
     Dates: start: 20210621, end: 20210621
  11. EVACAL D3 [Concomitant]
     Dosage: UNK UNK, BID
     Route: 065
  12. ERLOTINIB [Concomitant]
     Active Substance: ERLOTINIB
     Indication: Neoplasm malignant
     Dosage: UNK
  13. ERLOTINIB [Concomitant]
     Active Substance: ERLOTINIB
     Indication: Neoplasm malignant
  14. FAMOTIDINE [Concomitant]
     Active Substance: FAMOTIDINE
     Dosage: 20 MILLIGRAM
     Route: 065
     Dates: start: 20210416, end: 20210416
  15. FAMOTIDINE [Concomitant]
     Active Substance: FAMOTIDINE
     Dosage: 20 MILLIGRAM
     Route: 065
     Dates: start: 20210531, end: 20210531
  16. FAMOTIDINE [Concomitant]
     Active Substance: FAMOTIDINE
     Dosage: 20 MILLIGRAM
     Route: 065
     Dates: start: 20210621, end: 20210621
  17. FELODIPINE [Concomitant]
     Active Substance: FELODIPINE
     Dosage: 20 MILLIGRAM, QD
     Route: 065
     Dates: start: 20210416, end: 20210416
  18. LEVOTHYROXINE [Concomitant]
     Active Substance: LEVOTHYROXINE
     Dosage: UNK UNK, BID
     Route: 065
  19. LEVOTHYROXINE [Concomitant]
     Active Substance: LEVOTHYROXINE
     Dosage: UNK UNK, BID
     Route: 065
  20. OMEPRAZOLE [Concomitant]
     Active Substance: OMEPRAZOLE
     Dosage: UNK UNK, BID
     Route: 065
  21. OMEPRAZOLE [Concomitant]
     Active Substance: OMEPRAZOLE
     Dosage: UNK UNK, BID
     Route: 065
  22. ONDANSETRON [Concomitant]
     Active Substance: ONDANSETRON
     Dosage: 16 MILLIGRAM
     Route: 065
     Dates: start: 20210416, end: 20210416
  23. ONDANSETRON [Concomitant]
     Active Substance: ONDANSETRON
     Dosage: 16 MILLIGRAM
     Route: 065
     Dates: start: 20210531, end: 20210531
  24. ONDANSETRON [Concomitant]
     Active Substance: ONDANSETRON
     Dosage: 16 MILLIGRAM
     Route: 065
     Dates: start: 20210621, end: 20210621
  25. COVID-19 VACCINE NOS [Concomitant]
     Active Substance: COVID-19 VACCINE NOS
     Dosage: UNK

REACTIONS (2)
  - Autoimmune hepatitis [Recovered/Resolved]
  - Liver function test abnormal [Recovered/Resolved]

NARRATIVE: CASE EVENT DATE: 20210506
